FAERS Safety Report 25254086 (Version 1)
Quarter: 2025Q2

REPORT INFORMATION
  Report Type: Spontaneous
  Country: US (occurrence: US)
  Receive Date: 20250430
  Receipt Date: 20250430
  Transmission Date: 20250717
  Serious: Yes (Death, Hospitalization, Other)
  Sender: RANBAXY
  Company Number: US-SUN PHARMACEUTICAL INDUSTRIES LTD-2025R1-505368

PATIENT
  Age: 77 Year
  Sex: Male

DRUGS (2)
  1. ERLOTINIB [Suspect]
     Active Substance: ERLOTINIB
     Indication: Metastatic renal cell carcinoma
     Route: 065
  2. BEVACIZUMAB [Concomitant]
     Active Substance: BEVACIZUMAB
     Indication: Metastatic renal cell carcinoma
     Route: 065

REACTIONS (6)
  - Deep vein thrombosis [Fatal]
  - Gastrointestinal perforation [Fatal]
  - Haematochezia [Fatal]
  - Haematemesis [Fatal]
  - Peptic ulcer haemorrhage [Fatal]
  - Upper gastrointestinal haemorrhage [Fatal]
